FAERS Safety Report 5313369-0 (Version None)
Quarter: 2007Q2

REPORT INFORMATION
  Report Type: 
  Country: None (occurrence: None)
  Receive Date: 20070501
  Receipt Date: 20070426
  Transmission Date: 20071010
  Serious: Yes (Hospitalization)
  Sender: FDA-Public Use
  Company Number: JP-NOVOPROD-262712

PATIENT
  Age: 62 Year
  Sex: Female
  Weight: 29.025 kg

DRUGS (13)
  1. NOVORAPID 30 MIX CHU FLEXPEN [Suspect]
     Indication: INSULIN-REQUIRING TYPE II DIABETES MELLITUS
     Dosage: 113 IU, UNK
     Route: 058
     Dates: start: 20060511
  2. NOVORAPID CHU FLEXPEN [Suspect]
     Indication: INSULIN-REQUIRING TYPE II DIABETES MELLITUS
     Dosage: 25 IU, UNK
     Route: 058
     Dates: start: 20061108, end: 20070411
  3. NORVASC                            /00972402/ [Concomitant]
     Indication: DRUG USE FOR UNKNOWN INDICATION
     Dosage: 5 MG, UNK
     Route: 048
  4. MEVALOTIN [Concomitant]
     Indication: DRUG USE FOR UNKNOWN INDICATION
     Dosage: 10 MG, UNK
     Route: 048
  5. STOGAR [Concomitant]
     Indication: DRUG USE FOR UNKNOWN INDICATION
     Dosage: 20 MG, UNK
     Route: 048
  6. EPALRESTAT [Concomitant]
     Indication: DRUG USE FOR UNKNOWN INDICATION
     Dosage: 150 MG, UNK
     Route: 048
     Dates: start: 20040520
  7. PAXIL [Concomitant]
     Indication: DRUG USE FOR UNKNOWN INDICATION
     Dosage: 30 MG, UNK
     Route: 048
     Dates: start: 20050201
  8. BASEN [Concomitant]
     Indication: DRUG USE FOR UNKNOWN INDICATION
     Dosage: .9 MG, UNK
     Route: 048
     Dates: start: 20060719
  9. ACTOS [Concomitant]
     Indication: DRUG USE FOR UNKNOWN INDICATION
     Dosage: 15 MG, UNK
     Route: 048
     Dates: start: 20060913, end: 20061011
  10. OLMETEC [Concomitant]
     Indication: DRUG USE FOR UNKNOWN INDICATION
     Dosage: 20 MG, UNK
     Route: 048
     Dates: start: 20061108
  11. CALBLOCK [Concomitant]
     Indication: DRUG USE FOR UNKNOWN INDICATION
     Dosage: 16 MG, UNK
     Route: 048
     Dates: start: 20070129
  12. LIPITOR [Concomitant]
     Indication: DRUG USE FOR UNKNOWN INDICATION
     Dosage: 5 MG, UNK
     Route: 048
     Dates: start: 20060220
  13. BENJIX [Concomitant]
     Indication: DRUG USE FOR UNKNOWN INDICATION
     Dosage: .9 MG, UNK
     Route: 048

REACTIONS (2)
  - DIABETES MELLITUS INADEQUATE CONTROL [None]
  - HYPERHIDROSIS [None]
